FAERS Safety Report 11185337 (Version 1)
Quarter: 2015Q2

REPORT INFORMATION
  Report Type: Spontaneous
  Country: FR (occurrence: FR)
  Receive Date: 20150612
  Receipt Date: 20150612
  Transmission Date: 20150821
  Serious: Yes (Other)
  Sender: FDA-Public Use
  Company Number: FR-PFIZER INC-2015195771

PATIENT
  Sex: Female

DRUGS (1)
  1. RAPAMUNE [Suspect]
     Active Substance: SIROLIMUS
     Indication: AUTOIMMUNE HEPATITIS
     Dosage: 2 MG, DAILY

REACTIONS (2)
  - Product use issue [Unknown]
  - Breast cancer [Not Recovered/Not Resolved]
